FAERS Safety Report 4653678-1 (Version None)
Quarter: 2005Q2

REPORT INFORMATION
  Report Type: 
  Country: None (occurrence: None)
  Receive Date: 20050505
  Receipt Date: 20040317
  Transmission Date: 20051028
  Serious: Yes (Death, Hospitalization)
  Sender: FDA-Public Use
  Company Number: BE-JNJFOC-20031200570

PATIENT
  Age: 47 Year
  Sex: Male

DRUGS (1)
  1. PROPULSID [Suspect]

REACTIONS (7)
  - CACHEXIA [None]
  - CONDITION AGGRAVATED [None]
  - DISEASE PROGRESSION [None]
  - GASTRIC ULCER HAEMORRHAGE [None]
  - IMPAIRED GASTRIC EMPTYING [None]
  - MALIGNANT NEOPLASM PROGRESSION [None]
  - TUMOUR HAEMORRHAGE [None]
